FAERS Safety Report 12042743 (Version 1)
Quarter: 2016Q1

REPORT INFORMATION
  Report Type: Spontaneous
  Country: BR (occurrence: BR)
  Receive Date: 20160208
  Receipt Date: 20160208
  Transmission Date: 20160526
  Serious: Yes (Other)
  Sender: FDA-Public Use
  Company Number: BR-PFIZER INC-2016047863

PATIENT
  Sex: Female

DRUGS (2)
  1. CELEBRA [Suspect]
     Active Substance: CELECOXIB
     Indication: PAIN IN EXTREMITY
  2. CELEBRA [Suspect]
     Active Substance: CELECOXIB
     Indication: SPINAL PAIN
     Dosage: 1 TABLET
     Route: 048
     Dates: start: 20160125

REACTIONS (1)
  - Flavivirus infection [Recovered/Resolved]

NARRATIVE: CASE EVENT DATE: 20160126
